FAERS Safety Report 5175227-4 (Version None)
Quarter: 2006Q4

REPORT INFORMATION
  Report Type: 
  Country: None (occurrence: None)
  Receive Date: 20061206
  Receipt Date: 20061129
  Transmission Date: 20070319
  Serious: Yes (Hospitalization)
  Sender: FDA-Public Use
  Company Number: GXKR2006DE07731

PATIENT
  Age: 75 Year
  Sex: Male

DRUGS (1)
  1. DOXYCYCLINE [Suspect]
     Indication: PROPHYLAXIS
     Dosage: 200 MG, ORAL
     Route: 048
     Dates: start: 20060922, end: 20060930

REACTIONS (1)
  - CONVULSION [None]
